FAERS Safety Report 9345969 (Version 1)
Quarter: 2013Q2

REPORT INFORMATION
  Report Type: Spontaneous
  Country: US (occurrence: US)
  Receive Date: 20130613
  Receipt Date: 20130613
  Transmission Date: 20140414
  Serious: Yes (Other)
  Sender: FDA-Public Use
  Company Number: US-ASTELLAS-2013US004856

PATIENT
  Age: 64 Year
  Sex: Female

DRUGS (1)
  1. PROGRAF [Suspect]
     Indication: LIVER TRANSPLANT
     Dosage: 8 MG, UID/QD
     Route: 048
     Dates: start: 20130412, end: 20130425

REACTIONS (8)
  - Hypercapnia [Recovering/Resolving]
  - Biliary tract disorder [Unknown]
  - Liver function test abnormal [Unknown]
  - Blood albumin decreased [Unknown]
  - Blood pressure systolic abnormal [Unknown]
  - Abdominal discomfort [Unknown]
  - Hypocalcaemia [Unknown]
  - Hypomagnesaemia [Unknown]
